FAERS Safety Report 5093893-9 (Version None)
Quarter: 2006Q3

REPORT INFORMATION
  Report Type: 
  Country: None (occurrence: None)
  Receive Date: 20060829
  Receipt Date: 20060829
  Transmission Date: 20061208
  Serious: Yes (Other)
  Sender: FDA-Public Use
  Company Number: None

PATIENT
  Age: 46 Year
  Sex: Female
  Weight: 48.5349 kg

DRUGS (1)
  1. WHITE AND SHINE TOOTHPASTE  SAMPLE SIZE -SMALL- 23G  AQUAFRESH [Suspect]
     Indication: DENTAL CLEANING
     Dosage: DAILY SEVERAL TIMES DENTAL
     Route: 004
     Dates: start: 20060728, end: 20060825

REACTIONS (5)
  - DEJA VU [None]
  - DIZZINESS [None]
  - NAUSEA [None]
  - PHARMACEUTICAL PRODUCT COMPLAINT [None]
  - THERAPEUTIC PRODUCT CONTAMINATION [None]
